FAERS Safety Report 5420452-8 (Version None)
Quarter: 2007Q3

REPORT INFORMATION
  Report Type: 
  Country: None (occurrence: None)
  Receive Date: 20070817
  Receipt Date: 20070817
  Transmission Date: 20080115
  Serious: Yes (Hospitalization)
  Sender: FDA-Public Use
  Company Number: None

PATIENT
  Age: 81 Year
  Sex: Male
  Weight: 6.7132 kg

DRUGS (10)
  1. DOCETAXEL [Suspect]
     Indication: NEOPLASM MALIGNANT
     Dosage: IV, D1, 81MG
     Route: 042
     Dates: start: 20070724
  2. OXALIPLATIN [Suspect]
     Indication: NEOPLASM MALIGNANT
     Dosage: IV, D1, 175MG
     Route: 042
     Dates: start: 20070724
  3. ASPIRIN [Concomitant]
  4. ATENOLOL [Concomitant]
  5. CITALOPRAM [Concomitant]
  6. NITROGLYCERIN [Concomitant]
  7. RANITIDINE [Concomitant]
  8. SIMVASTATIN [Concomitant]
  9. TRIAMTERENE AND HYDROCHLOROTHIAZIDE [Concomitant]
  10. MOXIFLOXACIN HCL [Concomitant]

REACTIONS (7)
  - ANOREXIA [None]
  - GAIT DISTURBANCE [None]
  - HEADACHE [None]
  - NERVOUS SYSTEM DISORDER [None]
  - OPTIC DISC DISORDER [None]
  - PNEUMONIA ASPIRATION [None]
  - VOMITING [None]
